FAERS Safety Report 4854635-2 (Version None)
Quarter: 2005Q4

REPORT INFORMATION
  Report Type: 
  Country: None (occurrence: None)
  Receive Date: 20051214
  Receipt Date: 20051214
  Transmission Date: 20060501
  Serious: Yes (Hospitalization)
  Sender: FDA-Public Use
  Company Number: None

PATIENT
  Age: 61 Year
  Sex: Male
  Weight: 107 kg

DRUGS (6)
  1. AVODART [Suspect]
     Indication: PROSTATIC DISORDER
     Dosage: 1 ORALLY DAILY
     Route: 048
     Dates: start: 20040907, end: 20051115
  2. ACIPHEX [Concomitant]
  3. ADVIL [Concomitant]
  4. M.V.I. [Concomitant]
  5. TUMS [Concomitant]
  6. ASPIRIN [Concomitant]

REACTIONS (6)
  - CHEST DISCOMFORT [None]
  - CHEST PAIN [None]
  - NEPHROTIC SYNDROME [None]
  - OEDEMA PERIPHERAL [None]
  - PITTING OEDEMA [None]
  - PROTEINURIA [None]
